FAERS Safety Report 10178454 (Version 1)
Quarter: 2014Q2

REPORT INFORMATION
  Report Type: Spontaneous
  Country: BR (occurrence: BR)
  Receive Date: 20140519
  Receipt Date: 20140519
  Transmission Date: 20141212
  Serious: Yes (Hospitalization)
  Sender: FDA-Public Use
  Company Number: BR-JNJFOC-20140508397

PATIENT
  Age: 68 Year
  Sex: Female
  Weight: 37.19 kg

DRUGS (7)
  1. XARELTO [Suspect]
     Indication: ANTICOAGULANT THERAPY
     Route: 048
     Dates: start: 2013
  2. SIMVASTATIN [Concomitant]
     Indication: BLOOD CHOLESTEROL ABNORMAL
     Route: 048
     Dates: start: 2014
  3. DUOVENT [Concomitant]
     Indication: PNEUMONIA
     Route: 048
     Dates: start: 20140503
  4. DILTIAZEM [Concomitant]
     Indication: HYPERTENSION
     Route: 048
     Dates: start: 2013
  5. SERETIDE [Concomitant]
     Indication: CHRONIC OBSTRUCTIVE PULMONARY DISEASE
     Route: 048
     Dates: start: 2012
  6. SPIRIVA [Concomitant]
     Indication: CHRONIC OBSTRUCTIVE PULMONARY DISEASE
     Route: 048
     Dates: start: 2012
  7. ANCORON [Concomitant]
     Indication: ARRHYTHMIA
     Route: 048
     Dates: start: 2012

REACTIONS (4)
  - Pneumonia [Recovering/Resolving]
  - Feeling hot [Not Recovered/Not Resolved]
  - Paraesthesia [Unknown]
  - Rash macular [Not Recovered/Not Resolved]
